FAERS Safety Report 6115965-X (Version None)
Quarter: 2009Q1

REPORT INFORMATION
  Report Type: 
  Country: None (occurrence: None)
  Receive Date: 20090314
  Receipt Date: 20081215
  Transmission Date: 20090719
  Serious: No
  Sender: FDA-Public Use
  Company Number: US-ABBOTT-08P-163-0473367-00

PATIENT
  Sex: Male
  Weight: 63.56 kg

DRUGS (12)
  1. HUMIRA [Suspect]
     Indication: CROHN'S DISEASE
     Dosage: ONCE
     Dates: start: 20080801, end: 20080801
  2. HUMIRA [Suspect]
  3. HUMIRA [Suspect]
  4. ZYRTEC [Concomitant]
     Indication: HYPERSENSITIVITY
  5. CIMETIDINE [Concomitant]
     Indication: HYPERSENSITIVITY
  6. SINGULAIR [Concomitant]
     Indication: HYPERSENSITIVITY
  7. PRILOSEC [Concomitant]
     Indication: DRUG USE FOR UNKNOWN INDICATION
  8. ASACOL [Concomitant]
     Indication: DRUG USE FOR UNKNOWN INDICATION
  9. ALBUTEROL [Concomitant]
     Indication: DRUG USE FOR UNKNOWN INDICATION
  10. ASPIRIN [Concomitant]
     Indication: DRUG USE FOR UNKNOWN INDICATION
  11. BENADRYL [Concomitant]
     Indication: HYPERSENSITIVITY
  12. BENADRYL [Concomitant]
     Indication: PREMEDICATION

REACTIONS (14)
  - ARTHRALGIA [None]
  - BLOOD URINE PRESENT [None]
  - CHILLS [None]
  - EPISTAXIS [None]
  - GENITAL PAIN [None]
  - GROIN PAIN [None]
  - HEADACHE [None]
  - LOCAL SWELLING [None]
  - PAIN [None]
  - PAIN OF SKIN [None]
  - PYREXIA [None]
  - RASH [None]
  - SENSORY LOSS [None]
  - URTICARIA [None]
